FAERS Safety Report 19687397 (Version 2)
Quarter: 2021Q3

REPORT INFORMATION
  Report Type: Spontaneous
  Country: US (occurrence: US)
  Receive Date: 20210812
  Receipt Date: 20210824
  Transmission Date: 20211014
  Serious: No
  Sender: FDA-Public Use
  Company Number: US-CELGENEUS-USA-20210800921

PATIENT
  Sex: Female

DRUGS (1)
  1. ZEPOSIA [Suspect]
     Active Substance: OZANIMOD HYDROCHLORIDE
     Indication: MULTIPLE SCLEROSIS
     Dosage: .92 MILLIGRAM
     Route: 048
     Dates: start: 20201127

REACTIONS (6)
  - Bronchitis [Unknown]
  - Burning sensation [Unknown]
  - Feeling abnormal [Unknown]
  - Concussion [Unknown]
  - Ocular discomfort [Unknown]
  - Mental disorder [Unknown]
